FAERS Safety Report 7010020-9 (Version None)
Quarter: 2010Q3

REPORT INFORMATION
  Report Type: 
  Country: None (occurrence: None)
  Receive Date: 20100923
  Receipt Date: 20100914
  Transmission Date: 20110219
  Serious: Yes (Hospitalization)
  Sender: FDA-Public Use
  Company Number: US-AMGEN-KDC438050

PATIENT
  Age: 59 Year
  Sex: Male
  Weight: 83 kg

DRUGS (4)
  1. PANITUMUMAB [Suspect]
     Indication: OESOPHAGEAL CARCINOMA
     Route: 042
     Dates: start: 20100708
  2. TAXOTERE [Suspect]
     Route: 042
     Dates: start: 20100708
  3. CISPLATIN [Suspect]
     Route: 042
     Dates: start: 20100708
  4. RADIATION THERAPY [Suspect]

REACTIONS (3)
  - ACTIVATED PARTIAL THROMBOPLASTIN TIME ABNORMAL [None]
  - LYMPHOPENIA [None]
  - PULMONARY EMBOLISM [None]
